FAERS Safety Report 7907773-1 (Version None)
Quarter: 2011Q4

REPORT INFORMATION
  Report Type: 
  Country: None (occurrence: None)
  Receive Date: 20111110
  Receipt Date: 20111101
  Transmission Date: 20120403
  Serious: Yes (Hospitalization)
  Sender: FDA-Public Use
  Company Number: KR-ASTRAZENECA-2011SE66161

PATIENT
  Sex: Male
  Weight: 73 kg

DRUGS (22)
  1. ADALAT [Concomitant]
     Route: 048
     Dates: start: 20050124
  2. ATOCK [Concomitant]
     Route: 048
     Dates: start: 20050307
  3. RULID [Concomitant]
     Route: 048
     Dates: start: 20050402
  4. MUTERAN [Concomitant]
     Route: 048
     Dates: start: 20050307
  5. GANATON [Concomitant]
     Route: 048
     Dates: start: 20050307
  6. ASPIRIN [Concomitant]
     Route: 048
     Dates: start: 20050204
  7. SELBEX [Concomitant]
     Route: 048
     Dates: start: 20050425
  8. ELROTON [Concomitant]
     Route: 048
     Dates: start: 20050204
  9. LOZENCE [Concomitant]
     Route: 048
     Dates: start: 20020121
  10. AZELASTINE HCL [Concomitant]
     Route: 048
     Dates: start: 20050307, end: 20050510
  11. LODINE [Concomitant]
     Route: 048
     Dates: start: 20050402
  12. BIOFLOR [Concomitant]
     Route: 048
     Dates: start: 20050402
  13. SOLONDO [Concomitant]
     Route: 048
     Dates: start: 20050517
  14. TECENOL-ER [Concomitant]
     Route: 048
     Dates: start: 20050517
  15. VALIUM [Concomitant]
     Route: 048
     Dates: start: 20050524
  16. ERDOS [Concomitant]
     Route: 048
     Dates: start: 20050524
  17. CRESTOR [Suspect]
     Route: 048
     Dates: start: 20050204
  18. PLAVIX [Concomitant]
     Route: 048
     Dates: start: 20050118
  19. KLARICID XL [Concomitant]
     Route: 048
     Dates: start: 20050307
  20. ETHEOPHYL [Concomitant]
     Route: 048
     Dates: start: 20050510
  21. ASCOUGH [Concomitant]
     Route: 048
     Dates: start: 20050307
  22. CLEASE [Concomitant]
     Route: 048
     Dates: start: 20050524

REACTIONS (1)
  - ASTHMA [None]
